FAERS Safety Report 4308677-6 (Version None)
Quarter: 2004Q1

REPORT INFORMATION
  Report Type: 
  Country: None (occurrence: None)
  Receive Date: 20040226
  Receipt Date: 20040220
  Transmission Date: 20041129
  Serious: Yes (Hospitalization)
  Sender: FDA-Public Use
  Company Number: TCI2004A00693

PATIENT
  Age: 84 Year
  Sex: Female

DRUGS (3)
  1. ACTOS [Suspect]
     Indication: DIABETES MELLITUS
     Dosage: 15 MG (15 MG, 1 IN 1 D)
     Route: 048
     Dates: start: 20030101, end: 20040220
  2. DIGOXIN [Concomitant]
  3. ALLOPURINOL [Concomitant]

REACTIONS (2)
  - OEDEMA [None]
  - PLEURAL EFFUSION [None]
